FAERS Safety Report 4650893-8 (Version None)
Quarter: 2005Q2

REPORT INFORMATION
  Report Type: 
  Country: None (occurrence: None)
  Receive Date: 20050429
  Receipt Date: 20050419
  Transmission Date: 20051028
  Serious: Yes (Death)
  Sender: FDA-Public Use
  Company Number: 10881

PATIENT
  Age: 35 Year
  Sex: Female

DRUGS (4)
  1. MIDAZOLAM [Suspect]
     Indication: ANALGESIC EFFECT
  2. MIDAZOLAM [Suspect]
     Indication: SEDATION
  3. SUFENTANIL CITRATE [Concomitant]
  4. THIOPENTONE [Concomitant]

REACTIONS (10)
  - CARDIAC ARREST [None]
  - HAEMODIALYSIS [None]
  - HAEMODYNAMIC INSTABILITY [None]
  - HYPERKALAEMIA [None]
  - HYPOKALAEMIA [None]
  - HYPOTENSION [None]
  - POSTPARTUM SEPSIS [None]
  - RESPIRATORY DISORDER [None]
  - UTERINE ENLARGEMENT [None]
  - VENTRICULAR TACHYCARDIA [None]
